FAERS Safety Report 15920221 (Version 3)
Quarter: 2019Q1

REPORT INFORMATION
  Report Type: Spontaneous
  Country: DE (occurrence: DE)
  Receive Date: 20190205
  Receipt Date: 20190312
  Transmission Date: 20190417
  Serious: Yes (Other)
  Sender: FDA-Public Use
  Company Number: DE-MYLANLABS-2019M1008931

PATIENT
  Age: 35 Year
  Sex: Female
  Weight: 54 kg

DRUGS (14)
  1. METOPROLOL. [Suspect]
     Active Substance: METOPROLOL
     Indication: HYPERTENSION
     Dosage: 190 [MG/D ]/ INITIA 2 X 95MG/D, THEN DOSAGE DECREASE TO 2 X 47.5MG/D
     Route: 048
     Dates: start: 20171209, end: 20180504
  2. PANTOPRAZOLE [Suspect]
     Active Substance: PANTOPRAZOLE
     Dosage: 40 MG/DL, QD (0. - 13.5. GESTATIONAL WEEK)
     Route: 065
  3. NEPRESOL                           /00017902/ [Suspect]
     Active Substance: DIHYDRALAZINE SULFATE
     Indication: HYPERTENSION
     Dosage: 50 [MG/D ]
     Route: 048
     Dates: start: 20171209, end: 20180504
  4. TORASEMID [Concomitant]
     Active Substance: TORSEMIDE
     Dosage: UNK
     Route: 065
  5. TORASEMID [Concomitant]
     Active Substance: TORSEMIDE
     Indication: HYPERTENSION
     Dosage: UNK
     Route: 048
  6. MIFEGYNE [Concomitant]
     Active Substance: MIFEPRISTONE
     Indication: ABORTION INDUCED
     Dosage: UNK
     Route: 048
     Dates: start: 20180502, end: 20180503
  7. MIFEGYNE [Concomitant]
     Active Substance: MIFEPRISTONE
     Dosage: UNK
     Route: 065
  8. CERGEM [Concomitant]
     Active Substance: GEMEPROST
     Dosage: UNK
     Route: 065
  9. PANTOPRAZOLE [Suspect]
     Active Substance: PANTOPRAZOLE
     Indication: GASTRITIS PROPHYLAXIS
     Dosage: 40 [MG/D ]
     Route: 048
  10. CERGEM [Concomitant]
     Active Substance: GEMEPROST
     Indication: ABORTION INDUCED
     Dosage: UNK
     Route: 067
     Dates: start: 20180502, end: 20180503
  11. DORZOLAMIDE [Concomitant]
     Active Substance: DORZOLAMIDE
     Indication: GLAUCOMA
     Dosage: UNK (18.1 - 20.6 GESTATIONAL WEEK)
     Route: 047
  12. LAMOTRIGINE. [Suspect]
     Active Substance: LAMOTRIGINE
     Indication: EPILEPSY
     Dosage: 100 [MG/D ]/ 50 TO 100 MG/D
     Route: 048
     Dates: start: 20171209, end: 20180504
  13. CANDESARTAN. [Suspect]
     Active Substance: CANDESARTAN
     Indication: HYPERTENSION
     Dosage: 32 MG/DL, QD (0 - 9.5 GESTATIONAL WEEK)
     Route: 048
  14. LAMOTRIGINE. [Suspect]
     Active Substance: LAMOTRIGINE
     Dosage: 100 MG/DL/ 50 TO 100 MG/D, UNK (0. - 20.6. GESTATIONAL WEEK)
     Route: 065

REACTIONS (2)
  - Oligohydramnios [Recovered/Resolved]
  - Maternal exposure during pregnancy [Recovered/Resolved]
